FAERS Safety Report 23727515 (Version 3)
Quarter: 2024Q2

REPORT INFORMATION
  Report Type: Spontaneous
  Country: US (occurrence: US)
  Receive Date: 20240410
  Receipt Date: 20240517
  Transmission Date: 20240716
  Serious: No
  Sender: FDA-Public Use
  Company Number: US-BRISTOL-MYERS SQUIBB COMPANY-2024-056278

PATIENT
  Age: 68 Year
  Sex: Male
  Weight: 105.69 kg

DRUGS (1)
  1. POMALYST [Suspect]
     Active Substance: POMALIDOMIDE
     Indication: Plasma cell myeloma
     Dosage: FREQUENCY- M,W, + F FOR 21D ON 7D OFF
     Route: 048
     Dates: start: 20231016

REACTIONS (4)
  - Off label use [Unknown]
  - Fatigue [Unknown]
  - Bronchitis [Recovering/Resolving]
  - Illness [Unknown]
